FAERS Safety Report 8557758 (Version 6)
Quarter: 2013Q1

REPORT INFORMATION
  Report Type: Spontaneous
  Country: US (occurrence: US)
  Receive Date: 20120511
  Receipt Date: 20130307
  Transmission Date: 20140127
  Serious: Yes (Other)
  Sender: FDA-Public Use
  Company Number: US-ASTRAZENECA-2012SE29588

PATIENT
  Age: 66 Year
  Sex: Female

DRUGS (29)
  1. CRESTOR [Suspect]
     Indication: BLOOD CHOLESTEROL INCREASED
     Route: 048
     Dates: start: 20090505
  2. CRESTOR [Suspect]
     Indication: HYPERLIPIDAEMIA
     Route: 048
     Dates: start: 20090505
  3. CRESTOR [Suspect]
     Indication: BLOOD CHOLESTEROL INCREASED
     Dosage: CUT THE TABLETS IN HALF
     Route: 048
  4. CRESTOR [Suspect]
     Indication: HYPERLIPIDAEMIA
     Dosage: CUT THE TABLETS IN HALF
     Route: 048
  5. TOPROL XL [Suspect]
     Indication: HYPERTENSION
     Route: 048
  6. TOPROL XL [Suspect]
     Indication: HYPERTENSION
     Route: 048
     Dates: start: 20121002
  7. NAPROXEN [Suspect]
     Route: 065
  8. PRO-AIR HFA [Concomitant]
     Dosage: AS NEEDED
     Dates: start: 201206
  9. CATAPRES [Concomitant]
     Indication: BLOOD PRESSURE ABNORMAL
     Dates: start: 1981
  10. LOPRESSOR [Concomitant]
     Indication: BLOOD PRESSURE ABNORMAL
     Dates: start: 1981
  11. IMDUR [Concomitant]
     Indication: BLOOD PRESSURE ABNORMAL
     Dates: start: 199908
  12. CARDIZEM CD [Concomitant]
     Indication: BLOOD PRESSURE ABNORMAL
     Dates: start: 199908
  13. PLAVIX [Concomitant]
     Indication: ANTICOAGULANT THERAPY
     Dates: start: 199908
  14. ECOTRIN(ASPIRIN) [Concomitant]
     Indication: ANTICOAGULANT THERAPY
     Dates: start: 199908
  15. SYNTHROID [Concomitant]
     Indication: THYROID DISORDER
     Dates: start: 1981
  16. MIRAPEX [Concomitant]
     Indication: RESTLESS LEGS SYNDROME
  17. GLIMERPRIDE [Concomitant]
     Indication: BLOOD GLUCOSE ABNORMAL
  18. NITROSTAT [Concomitant]
     Indication: CHEST PAIN
  19. XANAX [Concomitant]
     Indication: NERVOUSNESS
  20. VICODIN [Concomitant]
     Indication: CHEST PAIN
     Dosage: 5-500 MG
  21. VICODIN [Concomitant]
     Indication: BACK PAIN
     Dosage: 5-500 MG
  22. VOLTAREN GEL [Concomitant]
     Indication: ARTHRALGIA
     Dosage: 100 WHEN NEEDED
  23. SYSTANE [Concomitant]
     Indication: DRY EYE
     Dosage: FOUR TO SIX TIMES A DAY
  24. ZADITOR [Concomitant]
     Indication: CATARACT
  25. BIOTIN [Concomitant]
  26. B-6 [Concomitant]
  27. B-1 [Concomitant]
  28. MULT [Concomitant]
     Dosage: EVERY OTHER DAY
  29. FISH OIL [Concomitant]

REACTIONS (11)
  - Pneumonia [Unknown]
  - Cerebrovascular accident [Unknown]
  - Aphonia [Unknown]
  - Lung disorder [Unknown]
  - Cardiac disorder [Unknown]
  - Drug intolerance [Unknown]
  - Drug hypersensitivity [Unknown]
  - Mental impairment [Unknown]
  - Diabetes mellitus [Unknown]
  - Vomiting [Unknown]
  - Intentional drug misuse [Unknown]
